FAERS Safety Report 9002928 (Version 2)
Quarter: 2013Q1

REPORT INFORMATION
  Report Type: Spontaneous
  Country: US (occurrence: US)
  Receive Date: 20130108
  Receipt Date: 20130111
  Transmission Date: 20140127
  Serious: Yes (Death)
  Sender: FDA-Public Use
  Company Number: US-PFIZER INC-2013007408

PATIENT
  Age: 84 Year
  Sex: Female

DRUGS (3)
  1. METRONIDAZOLE [Suspect]
  2. PHENOTHIAZINE [Suspect]
  3. FLURAZEPAM [Suspect]

REACTIONS (1)
  - Completed suicide [Fatal]
